FAERS Safety Report 4359066-X (Version None)
Quarter: 2004Q2

REPORT INFORMATION
  Report Type: 
  Country: None (occurrence: None)
  Receive Date: 20040517
  Receipt Date: 20030926
  Transmission Date: 20050107
  Serious: Yes (Death, Life-Threatening)
  Sender: FDA-Public Use
  Company Number: EE-ROCHE-347953

PATIENT
  Age: 61 Year
  Sex: Male

DRUGS (22)
  1. MYCOPHENOLATE MOFETIL [Suspect]
     Route: 065
     Dates: start: 20030924, end: 20030924
  2. MYCOPHENOLATE MOFETIL [Suspect]
     Route: 065
     Dates: start: 20030925, end: 20030929
  3. MYCOPHENOLATE MOFETIL [Suspect]
     Route: 065
     Dates: start: 20030930
  4. CYCLOSPORINE [Suspect]
     Route: 065
     Dates: start: 20030924, end: 20030924
  5. CYCLOSPORINE [Suspect]
     Route: 065
     Dates: start: 20030925, end: 20030925
  6. CYCLOSPORINE [Suspect]
     Route: 065
     Dates: start: 20030926, end: 20030926
  7. CYCLOSPORINE [Suspect]
     Route: 065
     Dates: start: 20030927, end: 20030927
  8. CYCLOSPORINE [Suspect]
     Route: 065
     Dates: start: 20030928, end: 20030928
  9. CYCLOSPORINE [Suspect]
     Route: 065
     Dates: start: 20030929, end: 20031001
  10. CYCLOSPORINE [Suspect]
     Route: 065
     Dates: start: 20031002, end: 20031003
  11. CYCLOSPORINE [Suspect]
     Route: 065
     Dates: start: 20031003
  12. METHYLPREDNISOLONE [Suspect]
     Route: 065
     Dates: start: 20030924, end: 20030924
  13. METHYLPREDNISOLONE [Suspect]
     Route: 065
     Dates: start: 20030925, end: 20030925
  14. METHYLPREDNISOLONE [Suspect]
     Route: 065
     Dates: start: 20030926, end: 20030926
  15. METHYLPREDNISOLONE [Suspect]
     Route: 065
     Dates: start: 20030927, end: 20030927
  16. METHYLPREDNISOLONE [Suspect]
     Route: 065
     Dates: start: 20030928, end: 20030928
  17. METHYLPREDNISOLONE [Suspect]
     Route: 065
     Dates: start: 20030929, end: 20030929
  18. METHYLPREDNISOLONE [Suspect]
     Route: 065
     Dates: start: 20030930, end: 20030930
  19. METHYLPREDNISOLONE [Suspect]
     Route: 065
     Dates: start: 20031001, end: 20031002
  20. METHYLPREDNISOLONE [Suspect]
     Route: 065
     Dates: start: 20031003
  21. AMLODIPINE [Concomitant]
     Dates: end: 20030924
  22. ISOSORBIDE MONONITRATE [Concomitant]

REACTIONS (35)
  - ANAEMIA [None]
  - ANURIA [None]
  - ARTERIAL DISORDER [None]
  - BLOOD CALCIUM DECREASED [None]
  - BLOOD LACTATE DEHYDROGENASE INCREASED [None]
  - BODY TEMPERATURE INCREASED [None]
  - C-REACTIVE PROTEIN INCREASED [None]
  - CARDIAC FAILURE [None]
  - CARDIAC FIBRILLATION [None]
  - CIRCULATORY COLLAPSE [None]
  - DILATATION ATRIAL [None]
  - ECHOCARDIOGRAM ABNORMAL [None]
  - EJECTION FRACTION DECREASED [None]
  - HAEMODIALYSIS [None]
  - HYPERGLYCAEMIA [None]
  - INFECTION [None]
  - KIDNEY TRANSPLANT REJECTION [None]
  - MITRAL VALVE DISEASE [None]
  - MYOCARDIAL INFARCTION [None]
  - OPEN WOUND [None]
  - PNEUMONIA KLEBSIELLA [None]
  - POST PROCEDURAL COMPLICATION [None]
  - POSTOPERATIVE INFECTION [None]
  - PULMONARY HYPERTENSION [None]
  - PURULENT DISCHARGE [None]
  - RETROPERITONEAL INFECTION [None]
  - SHOCK HAEMORRHAGIC [None]
  - SPUTUM ABNORMAL [None]
  - THERAPY NON-RESPONDER [None]
  - THROMBOCYTOPENIA [None]
  - TRICUSPID VALVE DISEASE [None]
  - VENTRICULAR HYPERTROPHY [None]
  - WHITE BLOOD CELL COUNT INCREASED [None]
  - WOUND HAEMORRHAGE [None]
  - WOUND INFECTION [None]
